FAERS Safety Report 9982412 (Version 1)
Quarter: 2014Q1

REPORT INFORMATION
  Report Type: Report from Study
  Country: US (occurrence: US)
  Receive Date: 20140307
  Receipt Date: 20140307
  Transmission Date: 20141002
  Serious: No
  Sender: FDA-Public Use
  Company Number: US-ABBVIE-13P-163-1180173-00

PATIENT
  Age: 54 Year
  Sex: Female

DRUGS (10)
  1. HUMIRA [Suspect]
     Indication: PSORIATIC ARTHROPATHY
     Route: 058
     Dates: start: 20131203
  2. HUMIRA [Suspect]
     Indication: PSORIASIS
  3. METFORMIN [Concomitant]
     Indication: DIABETES MELLITUS
  4. MVI [Concomitant]
     Indication: PRODUCT USED FOR UNKNOWN INDICATION
  5. GABAPENTIN [Concomitant]
     Indication: DIABETIC NEUROPATHY
  6. XANAX [Concomitant]
     Indication: INSOMNIA
  7. FUROSEMIDE [Concomitant]
     Indication: DIURETIC THERAPY
  8. KLOR-CON [Concomitant]
     Indication: MINERAL SUPPLEMENTATION
  9. LEVOTHYROXINE [Concomitant]
     Indication: HYPOTHYROIDISM
  10. PERIODIC SPINAL INJECTIONS [Concomitant]
     Indication: INTERVERTEBRAL DISC DEGENERATION

REACTIONS (5)
  - Joint dislocation [Not Recovered/Not Resolved]
  - Ligament laxity [Not Recovered/Not Resolved]
  - Pain [Not Recovered/Not Resolved]
  - Fall [Not Recovered/Not Resolved]
  - Joint dislocation [Not Recovered/Not Resolved]
